FAERS Safety Report 5572705-0 (Version None)
Quarter: 2007Q4

REPORT INFORMATION
  Report Type: 
  Country: None (occurrence: None)
  Receive Date: 20071130
  Receipt Date: 20070820
  Transmission Date: 20080405
  Serious: No
  Sender: FDA-Public Use
  Company Number: US-JNJFOC-20070804294

PATIENT
  Age: 72 Year
  Sex: Female

DRUGS (3)
  1. DACOGEN [Suspect]
     Indication: LEUKAEMIA
     Dosage: 6 CYCLES
  2. DACOGEN [Suspect]
     Indication: MYELODYSPLASTIC SYNDROME
     Dosage: 6 CYCLES
  3. FOSAMAX (ALENDRONATE SODIUM) UNSPECIFIED [Concomitant]

REACTIONS (4)
  - ANOREXIA [None]
  - RED BLOOD CELL COUNT DECREASED [None]
  - WEIGHT DECREASED [None]
  - WHITE BLOOD CELL COUNT DECREASED [None]
